FAERS Safety Report 9177190 (Version 2)
Quarter: 2013Q3

REPORT INFORMATION
  Report Type: Spontaneous
  Country: GB (occurrence: None)
  Receive Date: 20130319
  Receipt Date: 20130820
  Transmission Date: 20140515
  Serious: Yes (Other)
  Sender: FDA-Public Use
  Company Number: 2013MPI00139

PATIENT
  Age: 39 Year
  Sex: 0

DRUGS (1)
  1. ADCETRIS (BRENTUXIMAB VEDOTIN) INJECTION [Suspect]
     Indication: HODGKIN^S DISEASE
     Dates: start: 201202

REACTIONS (6)
  - Amnesia [None]
  - Transplant [None]
  - Mucosal inflammation [None]
  - Encephalopathy [None]
  - Computerised tomogram abnormal [None]
  - Disease progression [None]
